FAERS Safety Report 6663406-6 (Version None)
Quarter: 2010Q2

REPORT INFORMATION
  Report Type: 
  Country: None (occurrence: None)
  Receive Date: 20100401
  Receipt Date: 20100330
  Transmission Date: 20101027
  Serious: Yes (Other)
  Sender: FDA-Public Use
  Company Number: MA-ROXANE LABORATORIES, INC.-2010-RO-00356RO

PATIENT
  Age: 35 Year

DRUGS (12)
  1. LIDOCAINE [Suspect]
     Indication: NERVE BLOCK
     Dosage: 8 ML
  2. LIDOCAINE [Suspect]
     Indication: LOCAL ANAESTHESIA
     Dosage: 2 ML
  3. LIDOCAINE [Suspect]
     Route: 061
  4. HYDROXYZINE [Suspect]
     Indication: PREMEDICATION
  5. FENTANYL-25 [Concomitant]
     Indication: INDUCTION OF ANAESTHESIA
  6. PROPOFOL [Concomitant]
     Indication: INDUCTION OF ANAESTHESIA
  7. PROPOFOL [Concomitant]
  8. VECURONIUM BROMIDE [Concomitant]
     Indication: INDUCTION OF ANAESTHESIA
  9. SEVOFLURANE [Concomitant]
     Indication: MAINTENANCE OF ANAESTHESIA
  10. OXYGEN [Concomitant]
     Indication: MAINTENANCE OF ANAESTHESIA
     Route: 055
  11. SALBUTAMOL [Concomitant]
  12. SOLU-MEDROL [Concomitant]

REACTIONS (2)
  - BRONCHOSPASM [None]
  - OXYGEN SATURATION DECREASED [None]
